FAERS Safety Report 5143101-5 (Version None)
Quarter: 2006Q4

REPORT INFORMATION
  Report Type: 
  Country: None (occurrence: None)
  Receive Date: 20061031
  Receipt Date: 20061031
  Transmission Date: 20070319
  Serious: Yes (Life-Threatening, Disabling)
  Sender: FDA-Public Use
  Company Number: None

PATIENT
  Age: 78 Year
  Sex: Male
  Weight: 49.8 kg

DRUGS (16)
  1. ALBUMINAR [Suspect]
     Indication: HYPOTENSION
     Dosage: 50 ML   ONCE   HEMODIALYSIS
     Dates: start: 20061019, end: 20061022
  2. ALBUMINAR [Suspect]
     Indication: HYPOVOLAEMIA
     Dosage: 50 ML   ONCE   HEMODIALYSIS
     Dates: start: 20061019, end: 20061022
  3. NPH INSULIN [Concomitant]
  4. ASPIRIN [Concomitant]
  5. ESOMEPRAZOLE MAGNESIUM [Concomitant]
  6. DIGOXIN [Concomitant]
  7. METOCLOPRAMIDE [Concomitant]
  8. AMIODARONE HCL [Concomitant]
  9. VANCOMYCIN [Concomitant]
  10. CEFEPIME [Concomitant]
  11. SOLU-MEDROL [Concomitant]
  12. VASOPRESSIN [Concomitant]
  13. EPOGEN [Concomitant]
  14. CALCIUM CHLORIDE [Concomitant]
  15. COMBIVENT [Concomitant]
  16. FLOVENT [Concomitant]

REACTIONS (3)
  - BLOOD PRESSURE DECREASED [None]
  - INFUSION RELATED REACTION [None]
  - PROCEDURAL COMPLICATION [None]
